FAERS Safety Report 6869982-2 (Version None)
Quarter: 2010Q3

REPORT INFORMATION
  Report Type: 
  Country: None (occurrence: None)
  Receive Date: 20100722
  Receipt Date: 20080905
  Transmission Date: 20110219
  Serious: Yes (Other)
  Sender: FDA-Public Use
  Company Number: US-PFIZER INC-2008075793

PATIENT
  Sex: Male
  Weight: 72.6 kg

DRUGS (2)
  1. CHANTIX [Suspect]
     Indication: SMOKING CESSATION THERAPY
     Dates: start: 20070401, end: 20080201
  2. PREVACID [Concomitant]
     Indication: GASTRIC DISORDER

REACTIONS (2)
  - BLOOD CHOLESTEROL INCREASED [None]
  - SUICIDAL IDEATION [None]
